FAERS Safety Report 9846502 (Version 1)
Quarter: 2014Q1

REPORT INFORMATION
  Report Type: Spontaneous
  Country: US (occurrence: None)
  Receive Date: 20140122
  Receipt Date: 20140122
  Transmission Date: 20141002
  Serious: Yes (Death, Other)
  Sender: FDA-Public Use
  Company Number: SYM-2014-14938

PATIENT
  Age: 68 Year
  Sex: Male

DRUGS (1)
  1. XENAZINE (12.5 MILLIGRAM, TABLET) (TETRABENAZINE, TETRABENAZINE) [Suspect]
     Indication: TARDIVE DYSKINESIA
     Route: 048
     Dates: start: 2012, end: 20131201

REACTIONS (4)
  - Adverse drug reaction [None]
  - Muscle disorder [None]
  - General physical health deterioration [None]
  - Dementia [None]
